FAERS Safety Report 13912690 (Version 1)
Quarter: 2017Q3

REPORT INFORMATION
  Report Type: Spontaneous
  Country: US (occurrence: US)
  Receive Date: 20170828
  Receipt Date: 20170828
  Transmission Date: 20171127
  Serious: No
  Sender: FDA-Public Use
  Company Number: US-BAYER-2017-162812

PATIENT
  Age: 44 Year
  Sex: Female
  Weight: 136 kg

DRUGS (2)
  1. MIRALAX [Suspect]
     Active Substance: POLYETHYLENE GLYCOL 3350
     Indication: HERNIA REPAIR
     Dosage: MIX 8.3OZ MIRALAX WITH 1/2 GALLON GATORADE AND DRINK 8OZ MIX Q1HR
     Route: 048
     Dates: start: 20170824
  2. LANZOPRAL [Concomitant]
     Active Substance: LANSOPRAZOLE
     Dosage: UNK

REACTIONS (3)
  - Wrong technique in product usage process [None]
  - Product use in unapproved indication [Unknown]
  - Off label use [Unknown]

NARRATIVE: CASE EVENT DATE: 20170824
